FAERS Safety Report 9398525 (Version 1)
Quarter: 2013Q3

REPORT INFORMATION
  Report Type: Spontaneous
  Country: CA (occurrence: CA)
  Receive Date: 20130712
  Receipt Date: 20130712
  Transmission Date: 20140515
  Serious: Yes (Other)
  Sender: FDA-Public Use
  Company Number: CA-B.I. PHARMACEUTICALS,INC./RIDGEFIELD-2013-CN-01216CN

PATIENT
  Age: 82 Year
  Sex: Male
  Weight: 66 kg

DRUGS (12)
  1. PRADAX [Suspect]
     Dosage: 220 MG
     Route: 048
  2. MOBICOX [Suspect]
     Dosage: 15 MG
     Route: 048
  3. AMLODIPINE [Concomitant]
  4. APO-ESOMEPRAZOLE [Concomitant]
  5. APO-ROSUVASTATIN [Concomitant]
  6. FLOVENT [Concomitant]
  7. SANDOZ VALSARTAN [Concomitant]
  8. SERTRALINE [Concomitant]
  9. TEVA-LEVOFLOXACIN [Concomitant]
  10. TYLENOL NO. 1 CAPLETS [Concomitant]
  11. TYLENOL WITH CODINE NO. 3 [Concomitant]
  12. ZOPICLONE [Concomitant]

REACTIONS (6)
  - Abasia [Not Recovered/Not Resolved]
  - Bedridden [Not Recovered/Not Resolved]
  - Fatigue [Not Recovered/Not Resolved]
  - Haemoglobin decreased [Not Recovered/Not Resolved]
  - Haemoptysis [Not Recovered/Not Resolved]
  - Pneumonia [Not Recovered/Not Resolved]
